FAERS Safety Report 11301146 (Version 2)
Quarter: 2015Q4

REPORT INFORMATION
  Report Type: Spontaneous
  Country: US (occurrence: US)
  Receive Date: 20150722
  Receipt Date: 20151104
  Transmission Date: 20160304
  Serious: No
  Sender: FDA-Public Use
  Company Number: US-ELI_LILLY_AND_COMPANY-US201108009068

PATIENT
  Age: 78 Year
  Sex: Female

DRUGS (3)
  1. FORTEO [Suspect]
     Active Substance: TERIPARATIDE
  2. BISPHOSPHONATES [Concomitant]
     Active Substance: UNSPECIFIED INGREDIENT
  3. EVISTA [Suspect]
     Active Substance: RALOXIFENE HYDROCHLORIDE

REACTIONS (2)
  - Bone density decreased [Unknown]
  - Drug ineffective [Unknown]
